FAERS Safety Report 5555108-4 (Version None)
Quarter: 2007Q4

REPORT INFORMATION
  Report Type: 
  Country: None (occurrence: None)
  Receive Date: 20071213
  Receipt Date: 20070809
  Transmission Date: 20080405
  Serious: No
  Sender: FDA-Public Use
  Company Number: US-AMGEN-KDL235511

PATIENT
  Sex: Female
  Weight: 48.6 kg

DRUGS (7)
  1. ENBREL [Suspect]
     Indication: ANKYLOSING SPONDYLITIS
     Route: 058
     Dates: start: 20070701
  2. MOBIC [Concomitant]
  3. TYLENOL (CAPLET) [Concomitant]
  4. PRILOSEC [Concomitant]
  5. CLARITIN [Concomitant]
  6. UNSPECIFIED CONTRACEPTIVE [Concomitant]
  7. CALCIUM [Concomitant]

REACTIONS (3)
  - CONTUSION [None]
  - FALL [None]
  - JOINT SPRAIN [None]
